FAERS Safety Report 19486852 (Version 1)
Quarter: 2021Q3

REPORT INFORMATION
  Report Type: Spontaneous
  Country: US (occurrence: US)
  Receive Date: 20210701
  Receipt Date: 20210701
  Transmission Date: 20211014
  Serious: Yes (Hospitalization)
  Sender: FDA-Public Use
  Company Number: None

PATIENT
  Age: 40 Year
  Sex: Female

DRUGS (1)
  1. EMPAGLIFLOZIN [Suspect]
     Active Substance: EMPAGLIFLOZIN
     Indication: DIABETES MELLITUS
     Route: 048
     Dates: start: 20190522, end: 20210617

REACTIONS (5)
  - Chest pain [None]
  - Diarrhoea [None]
  - Nausea [None]
  - Euglycaemic diabetic ketoacidosis [None]
  - Vomiting [None]

NARRATIVE: CASE EVENT DATE: 20210617
